FAERS Safety Report 8342951-1 (Version None)
Quarter: 2012Q2

REPORT INFORMATION
  Report Type: 
  Country: None (occurrence: None)
  Receive Date: 20120504
  Receipt Date: 20120504
  Transmission Date: 20120825
  Serious: Yes (Other)
  Sender: FDA-Public Use
  Company Number: None

PATIENT

DRUGS (4)
  1. MELPHALAN HYDROCHLORIDE [Suspect]
     Indication: METASTATIC MALIGNANT MELANOMA
     Dosage: 172MG. INFUSE OVER 30 MIN
     Dates: start: 20120424
  2. MELPHALAN HYDROCHLORIDE [Suspect]
     Indication: METASTASES TO LIVER
     Dosage: 172MG. INFUSE OVER 30 MIN
     Dates: start: 20120424
  3. DELCATH SYSTEM/ PROCEDURE [Suspect]
  4. MULTI-VITAMIN [Concomitant]

REACTIONS (1)
  - TROPONIN INCREASED [None]
